FAERS Safety Report 23985547 (Version 2)
Quarter: 2024Q4

REPORT INFORMATION
  Report Type: Spontaneous
  Country: FR (occurrence: FR)
  Receive Date: 20240618
  Receipt Date: 20241001
  Transmission Date: 20250115
  Serious: Yes (Hospitalization)
  Sender: AUROBINDO
  Company Number: FR-GILEAD-2024-0675532

PATIENT
  Sex: Male
  Weight: 72 kg

DRUGS (2)
  1. CARBOPLATIN [Suspect]
     Active Substance: CARBOPLATIN
     Indication: Transitional cell carcinoma
     Dosage: 550 MILLIGRAM (550 MG, D1 EVERY 21 DAYS)
     Route: 042
     Dates: start: 20240423
  2. GEMCITABINE [Suspect]
     Active Substance: GEMCITABINE
     Indication: Transitional cell carcinoma
     Dosage: 1920 MILLIGRAM (1920 MG, D1 AND D8 EVERY 21 DAYS)
     Route: 042
     Dates: start: 20240423

REACTIONS (2)
  - General physical condition abnormal [Not Recovered/Not Resolved]
  - Asthenia [Recovered/Resolved]

NARRATIVE: CASE EVENT DATE: 20240530
